FAERS Safety Report 25329377 (Version 2)
Quarter: 2025Q2

REPORT INFORMATION
  Report Type: Spontaneous
  Country: US (occurrence: US)
  Receive Date: 20250519
  Receipt Date: 20250617
  Transmission Date: 20250717
  Serious: No
  Sender: ROCHE
  Company Number: US-ROCHE-10000279288

PATIENT
  Sex: Female

DRUGS (1)
  1. ACTEMRA ACTPEN [Suspect]
     Active Substance: TOCILIZUMAB
     Indication: Noninfective chorioretinitis
     Route: 058
     Dates: start: 202504

REACTIONS (3)
  - Off label use [Unknown]
  - Nausea [Recovering/Resolving]
  - Fatigue [Unknown]
